FAERS Safety Report 20443626 (Version 6)
Quarter: 2022Q1

REPORT INFORMATION
  Report Type: Report from Study
  Country: CA (occurrence: None)
  Receive Date: 20220208
  Receipt Date: 20220322
  Transmission Date: 20220423
  Serious: Yes (Other)
  Sender: FDA-Public Use
  Company Number: 2022A056013

PATIENT
  Sex: Male

DRUGS (12)
  1. CALQUENCE [Suspect]
     Active Substance: ACALABRUTINIB
     Indication: Chronic lymphocytic leukaemia
     Route: 048
  2. CALQUENCE [Suspect]
     Active Substance: ACALABRUTINIB
     Indication: Chronic lymphocytic leukaemia
     Route: 048
     Dates: start: 20220121, end: 20220216
  3. N-ACETYL-CYSTEINE [Concomitant]
  4. AZITHROMYCIN [Concomitant]
     Active Substance: AZITHROMYCIN
  5. BISOPROLOL [Concomitant]
     Active Substance: BISOPROLOL
  6. ELIQUIS [Concomitant]
     Active Substance: APIXABAN
  7. FLUOCINONIDE [Concomitant]
     Active Substance: FLUOCINONIDE
  8. FUCIDIN [Concomitant]
     Active Substance: FUSIDATE SODIUM
  9. MEDROL [Concomitant]
     Active Substance: METHYLPREDNISOLONE
  10. TAMSULOSIN/FLOMAX [Concomitant]
  11. IMIQUIMOD [Concomitant]
     Active Substance: IMIQUIMOD
  12. SERC-BETAHISTINE [Concomitant]

REACTIONS (8)
  - Malaise [Unknown]
  - Visual impairment [Unknown]
  - Headache [Unknown]
  - Nausea [Unknown]
  - Fatigue [Unknown]
  - Vomiting [Recovered/Resolved]
  - Diarrhoea [Recovered/Resolved]
  - Dizziness [Unknown]
